FAERS Safety Report 6142257-5 (Version None)
Quarter: 2009Q2

REPORT INFORMATION
  Report Type: 
  Country: None (occurrence: None)
  Receive Date: 20090401
  Receipt Date: 20090401
  Transmission Date: 20091009
  Serious: Yes (Hospitalization)
  Sender: FDA-Public Use
  Company Number: None

PATIENT
  Age: 27 Year
  Sex: Female
  Weight: 59.8748 kg

DRUGS (1)
  1. VENOFER [Suspect]
     Indication: ANAEMIA
     Dosage: 500 MG IV X 1
     Route: 042
     Dates: start: 20090216

REACTIONS (3)
  - DYSPNOEA [None]
  - OEDEMA PERIPHERAL [None]
  - URTICARIA [None]
